FAERS Safety Report 18997070 (Version 1)
Quarter: 2021Q1

REPORT INFORMATION
  Report Type: Spontaneous
  Country: US (occurrence: US)
  Receive Date: 20210311
  Receipt Date: 20210311
  Transmission Date: 20210420
  Serious: No
  Sender: FDA-Public Use
  Company Number: US-BAYER-2021-102453

PATIENT
  Sex: Male

DRUGS (2)
  1. MIRALAX [Suspect]
     Active Substance: POLYETHYLENE GLYCOL 3350
     Indication: CONSTIPATION
     Dosage: 17 G
     Route: 065
  2. LAXATIVE [BISACODYL] [Concomitant]
     Active Substance: BISACODYL
     Dosage: 2 DF

REACTIONS (1)
  - Drug ineffective [Unknown]
